FAERS Safety Report 23166846 (Version 1)
Quarter: 2023Q4

REPORT INFORMATION
  Report Type: Spontaneous
  Country: US (occurrence: US)
  Receive Date: 20231109
  Receipt Date: 20231109
  Transmission Date: 20240110
  Serious: No
  Sender: FDA-Public Use
  Company Number: US-002147023-NVSC2023US152708

PATIENT
  Sex: Female

DRUGS (4)
  1. COSENTYX [Suspect]
     Active Substance: SECUKINUMAB
     Indication: Psoriasis
     Dosage: UNK ROUTE OF ADMIN (FREE TEXT): INJECTION NOT OTHERWISE SPECIFIED
     Route: 065
  2. LEVOTHYROXINE [Suspect]
     Active Substance: LEVOTHYROXINE
     Indication: Psoriasis
     Dosage: UNK
     Route: 065
  3. LOSARTAN [Suspect]
     Active Substance: LOSARTAN
     Indication: Psoriasis
     Dosage: UNK
     Route: 065
  4. METHOTREXATE [Suspect]
     Active Substance: METHOTREXATE
     Indication: Psoriasis
     Dosage: UNK
     Route: 065

REACTIONS (10)
  - Psoriasis [Unknown]
  - Product use in unapproved indication [Unknown]
  - Pruritus [Unknown]
  - Arthralgia [Unknown]
  - Seborrhoeic keratosis [Unknown]
  - Papule [Unknown]
  - Haemangioma of skin [Unknown]
  - Skin discolouration [Unknown]
  - Lentigo [Unknown]
  - Macule [Unknown]
